FAERS Safety Report 5778643-2 (Version None)
Quarter: 2008Q2

REPORT INFORMATION
  Report Type: 
  Country: None (occurrence: None)
  Receive Date: 20080618
  Receipt Date: 20080618
  Transmission Date: 20081010
  Serious: Yes (Other)
  Sender: FDA-Public Use
  Company Number: None

PATIENT
  Sex: Male
  Weight: 90 kg

DRUGS (1)
  1. FLUCYTOSINE [Suspect]

REACTIONS (3)
  - BONE PAIN [None]
  - CHEST PAIN [None]
  - DYSPNOEA [None]
